FAERS Safety Report 17766674 (Version 4)
Quarter: 2020Q3

REPORT INFORMATION
  Report Type: Spontaneous
  Country: NZ (occurrence: GB)
  Receive Date: 20200511
  Receipt Date: 20200709
  Transmission Date: 20201102
  Serious: Yes (Hospitalization, Other)
  Sender: FDA-Public Use
  Company Number: NVSC2020NZ125673

PATIENT
  Age: 24 Year
  Sex: Female

DRUGS (3)
  1. METHOTREXATE. [Suspect]
     Active Substance: METHOTREXATE
     Indication: PRODUCT USED FOR UNKNOWN INDICATION
     Dosage: UNK
     Route: 048
  2. LAMOTRIGINE. [Suspect]
     Active Substance: LAMOTRIGINE
     Indication: BIPOLAR DISORDER
     Dosage: UNK
     Route: 065
  3. FILGRASTIM [Suspect]
     Active Substance: FILGRASTIM
     Indication: PRODUCT USED FOR UNKNOWN INDICATION
     Dosage: UNK
     Route: 065

REACTIONS (13)
  - Anaemia megaloblastic [Unknown]
  - Neutropenia [Recovered/Resolved]
  - Agranulocytosis [Unknown]
  - Mouth ulceration [Unknown]
  - Toxicity to various agents [Recovering/Resolving]
  - Febrile neutropenia [Unknown]
  - Prescription drug used without a prescription [Unknown]
  - Myelosuppression [Recovered/Resolved]
  - Staphylococcal bacteraemia [Recovering/Resolving]
  - Drug abuse [Recovering/Resolving]
  - Drug ineffective [Unknown]
  - Pancytopenia [Recovering/Resolving]
  - Cytopenia [Unknown]
